FAERS Safety Report 13667688 (Version 4)
Quarter: 2017Q3

REPORT INFORMATION
  Report Type: Report from Study
  Country: CA (occurrence: CA)
  Receive Date: 20170620
  Receipt Date: 20170804
  Transmission Date: 20171127
  Serious: Yes (Hospitalization, Other)
  Sender: FDA-Public Use
  Company Number: CA-SHIRE-CA201713367

PATIENT
  Age: 51 Year
  Sex: Male

DRUGS (9)
  1. RATIO-CODEINE [Concomitant]
     Indication: SHORT-BOWEL SYNDROME
     Dosage: UNK DF, 1X/DAY:QD (2 TO 4 TABLETS)
     Route: 065
  2. IMODIUM [Concomitant]
     Active Substance: LOPERAMIDE HYDROCHLORIDE
     Dosage: UNK, 2X/DAY:BID (SOMETIMES)
     Route: 065
     Dates: start: 201603
  3. REVESTIVE [Suspect]
     Active Substance: TEDUGLUTIDE
     Indication: SHORT-BOWEL SYNDROME
     Dosage: 3.1 MG, 1X/DAY:QD
     Route: 058
     Dates: start: 20160113
  4. IMODIUM [Concomitant]
     Active Substance: LOPERAMIDE HYDROCHLORIDE
     Indication: PRODUCT USED FOR UNKNOWN INDICATION
     Dosage: UNK, 4X/DAY:QID
     Route: 065
  5. TPN [Concomitant]
     Active Substance: AMINO ACIDS\DEXTROSE\ELECTROLYTES NOS\SOYBEAN OIL
     Dosage: 2000 ML, OTHER (2 TIMES A WEEK)
     Route: 042
     Dates: start: 20160328
  6. PANTOLOC                           /01263201/ [Concomitant]
     Active Substance: PANTOPRAZOLE SODIUM
     Indication: SHORT-BOWEL SYNDROME
     Dosage: UNK, 1X/DAY:QD (BEFORE BED)
     Route: 065
  7. TPN [Concomitant]
     Active Substance: AMINO ACIDS\DEXTROSE\ELECTROLYTES NOS\SOYBEAN OIL
     Indication: PRODUCT USED FOR UNKNOWN INDICATION
     Dosage: 2580 ML, OTHER (3 TIMES WEEKLY)
     Route: 042
     Dates: start: 201401, end: 20160328
  8. TPN [Concomitant]
     Active Substance: AMINO ACIDS\DEXTROSE\ELECTROLYTES NOS\SOYBEAN OIL
     Dosage: 2000 ML, 3X A WEEK
     Route: 042
     Dates: start: 201706
  9. TPN [Concomitant]
     Active Substance: AMINO ACIDS\DEXTROSE\ELECTROLYTES NOS\SOYBEAN OIL
     Dosage: UNK, OTHER (AROUND THE CLOCK)
     Route: 042
     Dates: start: 201706, end: 201706

REACTIONS (7)
  - Cholelithiasis [Unknown]
  - Drug dose omission [Unknown]
  - Malaise [Unknown]
  - Bile duct obstruction [Unknown]
  - Pain [Unknown]
  - Abdominal pain [Unknown]
  - Frequent bowel movements [Unknown]

NARRATIVE: CASE EVENT DATE: 2017
